FAERS Safety Report 15495191 (Version 5)
Quarter: 2019Q2

REPORT INFORMATION
  Report Type: Spontaneous
  Country: US (occurrence: US)
  Receive Date: 20181012
  Receipt Date: 20190624
  Transmission Date: 20190711
  Serious: Yes (Other)
  Sender: FDA-Public Use
  Company Number: US-PFIZER INC-2018410755

PATIENT
  Age: 64 Year
  Sex: Male
  Weight: 95.25 kg

DRUGS (13)
  1. GABAPENTIN. [Suspect]
     Active Substance: GABAPENTIN
     Indication: NEURALGIA
     Dosage: 600 MG, 3X/DAY
     Route: 048
     Dates: start: 2014, end: 20180719
  2. GABAPENTIN. [Suspect]
     Active Substance: GABAPENTIN
     Indication: BACK PAIN
     Dosage: 600 MG, 3X/DAY
     Route: 048
     Dates: start: 2018, end: 2018
  3. ACETAMINOPHEN;HYDROCODONE [Concomitant]
     Active Substance: ACETAMINOPHEN\HYDROCODONE
     Indication: BACK PAIN
     Dosage: 10/325MG TABLET IN THE MORNING AS NEEDED
     Route: 048
     Dates: start: 2014
  4. ACETAMINOPHEN;HYDROCODONE [Concomitant]
     Active Substance: ACETAMINOPHEN\HYDROCODONE
     Dosage: UNK [10/325 Q (EVERY) HRS]
  5. GABAPENTIN. [Suspect]
     Active Substance: GABAPENTIN
     Indication: SCIATICA
     Dosage: 600 MG, 3X/DAY (600 MG TID)
     Route: 048
     Dates: start: 20150909, end: 20180926
  6. GABAPENTIN. [Suspect]
     Active Substance: GABAPENTIN
     Indication: PAIN IN EXTREMITY
     Dosage: 600 MG, 3X/DAY
     Route: 048
     Dates: start: 20170908, end: 20181004
  7. DIAZEPAM. [Concomitant]
     Active Substance: DIAZEPAM
     Indication: MUSCLE SPASMS
     Dosage: 5 MG, 1-2 TABLETS AS NEEDED
     Route: 048
     Dates: start: 2016
  8. DIAZEPAM. [Concomitant]
     Active Substance: DIAZEPAM
     Indication: MUSCLE SPASMS
  9. ACETAMINOPHEN;HYDROCODONE [Concomitant]
     Active Substance: ACETAMINOPHEN\HYDROCODONE
     Dosage: HYDROCODONE: 325 G/PARACETAMOL: 10 G ,6 HRS PRN
     Dates: start: 20150818
  10. ASPIRIN. [Concomitant]
     Active Substance: ASPIRIN
     Indication: ANTICOAGULANT THERAPY
     Dosage: 81 MG, 1 TABLET AT NIGHT
     Route: 048
     Dates: start: 2018
  11. DIAZEPAM. [Concomitant]
     Active Substance: DIAZEPAM
     Indication: MUSCLE SPASMS
     Dosage: UNK, AS NEEDED (5 MG 1-2 PO DAILY)
     Route: 048
     Dates: start: 20151119
  12. ROSUVASTATIN. [Concomitant]
     Active Substance: ROSUVASTATIN
     Indication: BLOOD CHOLESTEROL ABNORMAL
     Dosage: 10 MG, 1 TABLET AT NIGHT
     Route: 048
     Dates: start: 2018
  13. DIAZEPAM. [Concomitant]
     Active Substance: DIAZEPAM
     Indication: BACK PAIN
     Dosage: 5 MG, DAILY [1-2 PO (ORAL) DAILY]
     Route: 048

REACTIONS (13)
  - Self-injurious ideation [Unknown]
  - Exostosis [Unknown]
  - Nightmare [Not Recovered/Not Resolved]
  - Neuropathy peripheral [Recovered/Resolved]
  - Feeling abnormal [Not Recovered/Not Resolved]
  - Suicidal ideation [Recovered/Resolved]
  - Drug hypersensitivity [Unknown]
  - Drug ineffective for unapproved indication [Not Recovered/Not Resolved]
  - Hypoaesthesia [Unknown]
  - Abnormal dreams [Unknown]
  - Vision blurred [Unknown]
  - Corrective lens user [Unknown]
  - Condition aggravated [Not Recovered/Not Resolved]

NARRATIVE: CASE EVENT DATE: 2014
